FAERS Safety Report 6727249-7 (Version None)
Quarter: 2010Q2

REPORT INFORMATION
  Report Type: 
  Country: None (occurrence: None)
  Receive Date: 20100517
  Receipt Date: 20100506
  Transmission Date: 20101027
  Serious: Yes (Other)
  Sender: FDA-Public Use
  Company Number: US-JNJFOC-20100503116

PATIENT
  Age: 50 Year
  Sex: Male

DRUGS (3)
  1. INTELENCE [Suspect]
     Indication: HIV INFECTION
     Route: 048
  2. ISENTRESS [Concomitant]
     Indication: HIV INFECTION
     Route: 048
  3. TRUVADA [Concomitant]
     Indication: HIV INFECTION
     Route: 048

REACTIONS (3)
  - CHOKING [None]
  - DYSPHAGIA [None]
  - PRODUCT QUALITY ISSUE [None]
